FAERS Safety Report 8141361-X (Version None)
Quarter: 2012Q1

REPORT INFORMATION
  Report Type: 
  Country: None (occurrence: None)
  Receive Date: 20120216
  Receipt Date: 20120207
  Transmission Date: 20120608
  Serious: No
  Sender: FDA-Public Use
  Company Number: PHEH2012US003235

PATIENT
  Age: 58 Year
  Sex: Female

DRUGS (5)
  1. TASIGNA [Suspect]
     Dosage: 150 MG, QID
  2. SIMVASTATIN [Concomitant]
     Dosage: 20 MG, QD
  3. DEXILANT [Concomitant]
     Dosage: UNK UKN, UNK
  4. LEXAPRO [Concomitant]
     Dosage: 10 MG, QD
  5. METFORMIN HCL [Concomitant]
     Dosage: 500 MG, QD

REACTIONS (4)
  - MEDICATION RESIDUE [None]
  - ABDOMINAL DISCOMFORT [None]
  - MALAISE [None]
  - NAUSEA [None]
